FAERS Safety Report 15074956 (Version 2)
Quarter: 2023Q4

REPORT INFORMATION
  Report Type: Spontaneous
  Country: US (occurrence: US)
  Receive Date: 20180627
  Receipt Date: 20231128
  Transmission Date: 20240110
  Serious: No
  Sender: FDA-Public Use
  Company Number: US-SAOL THERAPEUTICS-2017SAO01791

PATIENT
  Sex: Female

DRUGS (3)
  1. BACLOFEN [Suspect]
     Active Substance: BACLOFEN
     Indication: Pain
     Route: 037
  2. BACLOFEN [Suspect]
     Active Substance: BACLOFEN
     Indication: Complex regional pain syndrome
  3. DILAUDID [Suspect]
     Active Substance: HYDROMORPHONE HYDROCHLORIDE

REACTIONS (3)
  - Drug ineffective for unapproved indication [Unknown]
  - Pain [Unknown]
  - Medical device site pain [Unknown]
